FAERS Safety Report 5476240-X (Version None)
Quarter: 2007Q4

REPORT INFORMATION
  Report Type: 
  Country: None (occurrence: None)
  Receive Date: 20071003
  Receipt Date: 20070925
  Transmission Date: 20080405
  Serious: Yes (Death, Hospitalization)
  Sender: FDA-Public Use
  Company Number: US-PFIZER INC-2007029621

PATIENT
  Sex: Female

DRUGS (3)
  1. CELEBREX [Suspect]
     Indication: OSTEOARTHRITIS
     Dates: start: 19970101, end: 20040101
  2. BEXTRA [Suspect]
     Indication: OSTEOARTHRITIS
     Dates: start: 20010101, end: 20040101
  3. VIOXX [Suspect]
     Dates: start: 20000101, end: 20040101

REACTIONS (2)
  - DEPRESSION [None]
  - MYOCARDIAL INFARCTION [None]
